FAERS Safety Report 6348869-8 (Version None)
Quarter: 2009Q3

REPORT INFORMATION
  Report Type: 
  Country: None (occurrence: None)
  Receive Date: 20090911
  Receipt Date: 20090910
  Transmission Date: 20100115
  Serious: Yes (Death, Life-Threatening, Other)
  Sender: FDA-Public Use
  Company Number: JP-BAYER-200911440BYL

PATIENT
  Age: 40 Year
  Sex: Male
  Weight: 50 kg

DRUGS (13)
  1. FLUDARA [Suspect]
     Indication: ACUTE MYELOID LEUKAEMIA
     Dosage: AS USED: 50 MG  UNIT DOSE: 50 MG
     Route: 042
     Dates: start: 20090121, end: 20090124
  2. CYTARABINE [Concomitant]
     Indication: ACUTE MYELOID LEUKAEMIA
     Dosage: AS USED: 100 MG
     Route: 042
     Dates: start: 20090108, end: 20090112
  3. CYTARABINE [Concomitant]
     Dosage: AS USED: 3200 MG
     Route: 042
     Dates: start: 20090121, end: 20090124
  4. BUSULFAN [Concomitant]
     Indication: ACUTE MYELOID LEUKAEMIA
     Dosage: AS USED: 190 MG
     Route: 042
     Dates: start: 20090125, end: 20090128
  5. NEUPOGEN [Concomitant]
     Indication: ACUTE MYELOID LEUKAEMIA
     Dosage: AS USED: 300 ?G
     Route: 065
     Dates: start: 20090121, end: 20090124
  6. NEUPOGEN [Concomitant]
     Dosage: AS USED: 600 ?G
     Route: 065
     Dates: start: 20090212, end: 20090214
  7. NEUPOGEN [Concomitant]
     Dosage: AS USED: 450 ?G
     Route: 065
     Dates: start: 20090204, end: 20090211
  8. TACROLIMUS [Concomitant]
     Dosage: AS USED: 0.58-1.2 MG
     Route: 065
     Dates: start: 20090127, end: 20090228
  9. METHOTREXATE [Concomitant]
     Dosage: AS USED: 10 MG
     Route: 065
     Dates: start: 20090202, end: 20090202
  10. METHOTREXATE [Concomitant]
     Dosage: AS USED: 10 MG
     Route: 065
     Dates: start: 20090206, end: 20090210
  11. ANTI-THYMOCYTE GLOBULIN NOS [Concomitant]
     Indication: STEM CELL TRANSPLANT
     Route: 065
     Dates: start: 20090225, end: 20090225
  12. ANTI-THYMOCYTE GLOBULIN NOS [Concomitant]
     Route: 065
     Dates: start: 20090224, end: 20090224
  13. ANTI-THYMOCYTE GLOBULIN NOS [Concomitant]
     Route: 065
     Dates: start: 20090223, end: 20090223

REACTIONS (5)
  - JAUNDICE [None]
  - LIVER DISORDER [None]
  - RENAL DISORDER [None]
  - RENAL IMPAIRMENT [None]
  - SEPSIS [None]
